FAERS Safety Report 5292114-1 (Version None)
Quarter: 2007Q2

REPORT INFORMATION
  Report Type: 
  Country: None (occurrence: None)
  Receive Date: 20070403
  Receipt Date: 20070321
  Transmission Date: 20071010
  Serious: Yes (Disabling)
  Sender: FDA-Public Use
  Company Number: 200703006

PATIENT
  Age: 42 Year
  Sex: Male
  Weight: 140 kg

DRUGS (5)
  1. TESTIM [Suspect]
     Indication: HYPOGONADISM
     Dosage: 50 MG, DAILY, TRANSDERMAL
     Route: 062
     Dates: start: 20061106, end: 20070323
  2. ASPIRIN [Concomitant]
  3. CITALOPRAM HYDROBROMIDE [Concomitant]
  4. MONTELUKAST (MONTELUKAST) [Concomitant]
  5. XENICAL [Concomitant]

REACTIONS (3)
  - CONDITION AGGRAVATED [None]
  - DRUG EFFECT DECREASED [None]
  - SLEEP APNOEA SYNDROME [None]
